FAERS Safety Report 25441695 (Version 1)
Quarter: 2025Q2

REPORT INFORMATION
  Report Type: Spontaneous
  Country: US (occurrence: None)
  Receive Date: 20250616
  Receipt Date: 20250616
  Transmission Date: 20250716
  Serious: Yes (Hospitalization)
  Sender: FDA-CTU
  Company Number: None

PATIENT
  Sex: Male

DRUGS (11)
  1. TACROLIMUS [Suspect]
     Active Substance: TACROLIMUS
     Indication: Liver transplant
     Dosage: FREQUENCY : TWICE A DAY;?
     Route: 048
     Dates: start: 20211112
  2. ALBUTEROL AER HFA [Concomitant]
  3. AMLODIPINE TAB [Concomitant]
  4. ASPIRIN LOW CHW [Concomitant]
  5. ATORVASTATIN [Concomitant]
     Active Substance: ATORVASTATIN
  6. ATORVASTATIN [Concomitant]
     Active Substance: ATORVASTATIN
  7. BACTRIM DS TAB [Concomitant]
  8. CALCIPOTRIEN CRE [Concomitant]
  9. DESOXIMETAS CRE [Concomitant]
  10. FENOFIBRATE TAB [Concomitant]
  11. IJANUVIA TAB [Concomitant]

REACTIONS (1)
  - Surgery [None]
